FAERS Safety Report 20641939 (Version 1)
Quarter: 2022Q1

REPORT INFORMATION
  Report Type: Report from Study
  Country: US (occurrence: US)
  Receive Date: 20220328
  Receipt Date: 20220328
  Transmission Date: 20220423
  Serious: No
  Sender: FDA-Public Use
  Company Number: US-KYOWAKIRIN-2022BKK004168

PATIENT

DRUGS (1)
  1. CRYSVITA [Suspect]
     Active Substance: BUROSUMAB-TWZA
     Indication: Osteomalacia
     Dosage: 20 MG, EVERY 4 WEEKS
     Route: 058
     Dates: start: 20211109, end: 20220315

REACTIONS (1)
  - Blood phosphorus increased [Unknown]

NARRATIVE: CASE EVENT DATE: 20220219
